FAERS Safety Report 5086172-7 (Version None)
Quarter: 2006Q3

REPORT INFORMATION
  Report Type: 
  Country: None (occurrence: None)
  Receive Date: 20060818
  Receipt Date: 20060807
  Transmission Date: 20061208
  Serious: Yes (Disabling)
  Sender: FDA-Public Use
  Company Number: 2006097172

PATIENT
  Age: 74 Year
  Sex: Female

DRUGS (1)
  1. LOPID [Suspect]
     Indication: DRUG USE FOR UNKNOWN INDICATION
     Dosage: 1200 MG (600 MG, 2 IN 1 D), UNKNOWN

REACTIONS (2)
  - GAIT DISTURBANCE [None]
  - TENDON RUPTURE [None]
